FAERS Safety Report 13823809 (Version 2)
Quarter: 2017Q3

REPORT INFORMATION
  Report Type: Spontaneous
  Country: US (occurrence: US)
  Receive Date: 20170802
  Receipt Date: 20170803
  Transmission Date: 20171127
  Serious: No
  Sender: FDA-Public Use
  Company Number: US-PFIZER INC-2017330046

PATIENT
  Age: 76 Year
  Sex: Female
  Weight: 52 kg

DRUGS (1)
  1. LYRICA [Suspect]
     Active Substance: PREGABALIN
     Indication: NEUROPATHY PERIPHERAL
     Dosage: 75 MG, 2X/DAY, IN THE MORNING AND ONE IN THE AFTERNOON
     Route: 048
     Dates: start: 2017

REACTIONS (5)
  - Restlessness [Unknown]
  - Fatigue [Unknown]
  - Gait disturbance [Unknown]
  - Somnolence [Unknown]
  - Drug effect incomplete [Unknown]
